FAERS Safety Report 13965081 (Version 1)
Quarter: 2017Q3

REPORT INFORMATION
  Report Type: Spontaneous
  Country: US (occurrence: US)
  Receive Date: 20170913
  Receipt Date: 20170913
  Transmission Date: 20171128
  Serious: No
  Sender: FDA-Public Use
  Company Number: US-PERRIGO-16US020720

PATIENT
  Age: 56 Year
  Sex: Female
  Weight: 61.22 kg

DRUGS (2)
  1. EVAMIST [Suspect]
     Active Substance: ESTRADIOL
     Dosage: 1/4 SPRAY EACH ARM, QD
     Route: 062
     Dates: start: 20160917, end: 20161004
  2. EVAMIST [Suspect]
     Active Substance: ESTRADIOL
     Indication: HORMONE REPLACEMENT THERAPY
     Dosage: 1.53 MG EACH ARM, QD
     Route: 062
     Dates: start: 2015, end: 20160916

REACTIONS (1)
  - Underdose [Unknown]

NARRATIVE: CASE EVENT DATE: 20160917
